FAERS Safety Report 23272543 (Version 1)
Quarter: 2023Q4

REPORT INFORMATION
  Report Type: Spontaneous
  Country: US (occurrence: US)
  Receive Date: 20231207
  Receipt Date: 20231207
  Transmission Date: 20240110
  Serious: Yes (Other)
  Sender: FDA-Public Use
  Company Number: US-BRISTOL-MYERS SQUIBB COMPANY-2023-176879

PATIENT
  Age: 67 Year
  Sex: Female
  Weight: 67.131 kg

DRUGS (1)
  1. REVLIMID [Suspect]
     Active Substance: LENALIDOMIDE
     Indication: Plasma cell myeloma
     Dosage: FREQUENCY: 21 DAYS OF 28 DAYS
     Route: 048
     Dates: start: 20201001

REACTIONS (1)
  - Plasma cell myeloma [Unknown]
